FAERS Safety Report 25286199 (Version 1)
Quarter: 2025Q2

REPORT INFORMATION
  Report Type: Report from Study
  Country: CA (occurrence: CA)
  Receive Date: 20250509
  Receipt Date: 20250509
  Transmission Date: 20250716
  Serious: Yes (Hospitalization)
  Sender: ABBVIE
  Company Number: CA-ABBVIE-6270368

PATIENT
  Sex: Male

DRUGS (1)
  1. HUMIRA [Suspect]
     Active Substance: ADALIMUMAB
     Indication: Colitis ulcerative
     Dosage: DOSE STRENGTH: HUMIRA PEN 40 MG/0.8ML?ON 22 APR 2025 TOOK LAST HUMIRA DOSE
     Route: 058

REACTIONS (5)
  - Asthenia [Unknown]
  - Hepatic enzyme increased [Unknown]
  - International normalised ratio abnormal [Unknown]
  - Blood potassium abnormal [Unknown]
  - Blood albumin abnormal [Unknown]
